FAERS Safety Report 19750318 (Version 1)
Quarter: 2021Q3

REPORT INFORMATION
  Report Type: Spontaneous
  Country: US (occurrence: US)
  Receive Date: 20210826
  Receipt Date: 20210826
  Transmission Date: 20211014
  Serious: Yes (Life-Threatening, Hospitalization, Disabling, Other)
  Sender: FDA-Public Use
  Company Number: None

PATIENT
  Age: 23 Year
  Sex: Female
  Weight: 76 kg

DRUGS (1)
  1. ANNOVERA [Suspect]
     Active Substance: ETHINYL ESTRADIOL\SEGESTERONE ACETATE
     Indication: CONTRACEPTION
     Dosage: ?          OTHER FREQUENCY:3 WEEKS ON, 1 OFF;?
     Route: 067
     Dates: start: 20210713, end: 20210730

REACTIONS (12)
  - Streptococcus test positive [None]
  - Deep vein thrombosis [None]
  - Septic shock [None]
  - Multiple organ dysfunction syndrome [None]
  - Blood culture positive [None]
  - Cardiomyopathy [None]
  - Respiratory failure [None]
  - Myocarditis [None]
  - Pulmonary embolism [None]
  - Hepatitis [None]
  - Thrombocytopenia [None]
  - Anaemia [None]

NARRATIVE: CASE EVENT DATE: 20210730
